FAERS Safety Report 5628597-4 (Version None)
Quarter: 2008Q1

REPORT INFORMATION
  Report Type: 
  Country: None (occurrence: None)
  Receive Date: 20080215
  Receipt Date: 20080206
  Transmission Date: 20080703
  Serious: Yes (Hospitalization)
  Sender: FDA-Public Use
  Company Number: ES-PFIZER INC-2008011534

PATIENT
  Age: 72 Year
  Sex: Female

DRUGS (9)
  1. CARDURA [Suspect]
  2. ACURETIC [Interacting]
  3. CABERGOLINE [Interacting]
  4. PAROXETINE [Interacting]
  5. SELEGILINE HCL [Interacting]
  6. OMEPRAZOLE [Interacting]
  7. BISOPROLOL FUMARATE [Interacting]
  8. FUROSEMIDE [Interacting]
  9. SINEMET [Interacting]
     Dosage: TEXT:25/100

REACTIONS (3)
  - DRUG INTERACTION [None]
  - ORTHOSTATIC HYPOTENSION [None]
  - PRESYNCOPE [None]
